FAERS Safety Report 4716805-3 (Version None)
Quarter: 2005Q3

REPORT INFORMATION
  Report Type: 
  Country: None (occurrence: None)
  Receive Date: 20050719
  Receipt Date: 20041209
  Transmission Date: 20060218
  Serious: Yes (Hospitalization)
  Sender: FDA-Public Use
  Company Number: US-MERCK-0412USA01166

PATIENT
  Age: 70 Year
  Sex: Female
  Weight: 91 kg

DRUGS (6)
  1. VIOXX [Suspect]
     Indication: ARTHRALGIA
     Route: 048
     Dates: start: 20030203
  2. VIOXX [Suspect]
     Route: 048
     Dates: start: 20030201, end: 20040901
  3. VIOXX [Suspect]
     Indication: BACK PAIN
     Route: 048
     Dates: start: 20030203
  4. VIOXX [Suspect]
     Route: 048
     Dates: start: 20030201, end: 20040901
  5. LIPITOR [Concomitant]
     Route: 065
  6. ASPIRIN [Concomitant]
     Route: 065

REACTIONS (6)
  - ACUTE MYOCARDIAL INFARCTION [None]
  - DIZZINESS [None]
  - DYSPNOEA [None]
  - PULMONARY HYPERTENSION [None]
  - SINUSITIS [None]
  - VERTIGO [None]
